FAERS Safety Report 23999444 (Version 1)
Quarter: 2024Q2

REPORT INFORMATION
  Report Type: Spontaneous
  Country: US (occurrence: US)
  Receive Date: 20240621
  Receipt Date: 20240621
  Transmission Date: 20240717
  Serious: No
  Sender: FDA-Public Use
  Company Number: US-FDC-2024USSPO00453

PATIENT
  Age: 90 Year
  Sex: Male
  Weight: 72.5 kg

DRUGS (1)
  1. CIPROFLOXACIN [Suspect]
     Active Substance: CIPROFLOXACIN
     Indication: Eye haemorrhage
     Dosage: ONE DROP IN RIGHT EYE
     Route: 047
     Dates: start: 20240531

REACTIONS (2)
  - Eye pain [Not Recovered/Not Resolved]
  - Product use in unapproved indication [Unknown]

NARRATIVE: CASE EVENT DATE: 20240531
